FAERS Safety Report 6239707-2 (Version None)
Quarter: 2009Q2

REPORT INFORMATION
  Report Type: 
  Country: None (occurrence: None)
  Receive Date: 20090619
  Receipt Date: 20090609
  Transmission Date: 20091009
  Serious: No
  Sender: FDA-Public Use
  Company Number: B0578771A

PATIENT
  Age: 51 Year
  Sex: Male

DRUGS (1)
  1. WELLBUTRIN XL TABLET-EXTENDED RELEASE [Suspect]
     Indication: EX-TOBACCO USER
     Dosage: 150 MG / ORAL
     Route: 048

REACTIONS (1)
  - ACUTE CORONARY SYNDROME [None]
